FAERS Safety Report 25530023 (Version 1)
Quarter: 2025Q3

REPORT INFORMATION
  Report Type: Spontaneous
  Country: US (occurrence: US)
  Receive Date: 20250708
  Receipt Date: 20250708
  Transmission Date: 20251020
  Serious: Yes (Life-Threatening, Other)
  Sender: PRECISION DOSE, INC.
  Company Number: US-PRECISION DOSE, INC.-2025PRD00005

PATIENT
  Age: 39 Year
  Sex: Female

DRUGS (2)
  1. DEXMEDETOMIDINE [Suspect]
     Active Substance: DEXMEDETOMIDINE
     Indication: Agitation
  2. HALOPERIDOL [Concomitant]
     Active Substance: HALOPERIDOL
     Indication: Agitation

REACTIONS (2)
  - Bradycardia [Recovered/Resolved]
  - Torsade de pointes [Recovered/Resolved]
